FAERS Safety Report 26191413 (Version 1)
Quarter: 2025Q4

REPORT INFORMATION
  Report Type: Report from Study
  Country: CA (occurrence: CA)
  Receive Date: 20251223
  Receipt Date: 20251223
  Transmission Date: 20260118
  Serious: Yes (Hospitalization)
  Sender: REGENERON
  Company Number: CA-BAYER-2025A069649

PATIENT
  Sex: Male

DRUGS (1)
  1. EYLEA [Suspect]
     Active Substance: AFLIBERCEPT
     Indication: Diabetic retinal oedema
     Dosage: UNK, SOLUTION FOR INJECTION, 40 MG/ML
     Dates: start: 20250508

REACTIONS (1)
  - Hospitalisation [Unknown]
